FAERS Safety Report 5470279-6 (Version None)
Quarter: 2007Q3

REPORT INFORMATION
  Report Type: 
  Country: None (occurrence: None)
  Receive Date: 20070924
  Receipt Date: 20070911
  Transmission Date: 20080115
  Serious: Yes (Other)
  Sender: FDA-Public Use
  Company Number: 2007AP000995

PATIENT
  Age: 26 Year
  Sex: Male

DRUGS (1)
  1. HALOPERIDOL [Suspect]
     Indication: BIPOLAR DISORDER
     Dosage: PO; IM
     Route: 048

REACTIONS (6)
  - DYSARTHRIA [None]
  - DYSTONIA [None]
  - HEADACHE [None]
  - JOINT DISLOCATION [None]
  - MASTICATION DISORDER [None]
  - WEIGHT DECREASED [None]
